FAERS Safety Report 17648087 (Version 2)
Quarter: 2020Q4

REPORT INFORMATION
  Report Type: Spontaneous
  Country: US (occurrence: US)
  Receive Date: 20200409
  Receipt Date: 20201012
  Transmission Date: 20210113
  Serious: Yes (Hospitalization, Other)
  Sender: FDA-Public Use
  Company Number: US-LUPIN PHARMACEUTICALS INC.-2020-01601

PATIENT
  Age: 4 Year
  Weight: 18 kg

DRUGS (2)
  1. CLONIDINE. [Suspect]
     Active Substance: CLONIDINE
     Indication: ATTENTION DEFICIT HYPERACTIVITY DISORDER
     Dosage: 4 DOSAGE FORM, SINGLE (OVERDOSE)
     Route: 048
  2. CLONIDINE. [Suspect]
     Active Substance: CLONIDINE
     Indication: AUTISM SPECTRUM DISORDER
     Dosage: 0.1 MILLIGRAM, QD (FORMULATION: TABLET)
     Route: 048

REACTIONS (8)
  - Overdose [Unknown]
  - Apnoea [Recovered/Resolved]
  - Obstructive airways disorder [Recovered/Resolved]
  - Bradycardia [Recovered/Resolved]
  - Gait disturbance [Recovered/Resolved]
  - Dyspnoea [Recovered/Resolved]
  - Toxicity to various agents [Recovered/Resolved]
  - Mental impairment [Recovered/Resolved]
